FAERS Safety Report 9458622 (Version 1)
Quarter: 2013Q3

REPORT INFORMATION
  Report Type: Spontaneous
  Country: US (occurrence: None)
  Receive Date: 20130812
  Receipt Date: 20130812
  Transmission Date: 20140515
  Serious: Yes (Other)
  Sender: FDA-Public Use
  Company Number: AUR-APL-2013-06588

PATIENT
  Age: 77 Year
  Sex: Male
  Weight: 92.06 kg

DRUGS (2)
  1. METOPROLOL (METOPROLOL) [Suspect]
     Indication: HYPERTENSION
  2. INSULIIN [Suspect]
     Indication: DIABETES MELLITUS
     Dosage: AS REQUIRED (UNKNOWN DOSAGE)

REACTIONS (1)
  - Blood pressure increased [None]
